FAERS Safety Report 6453777-8 (Version None)
Quarter: 2009Q4

REPORT INFORMATION
  Report Type: 
  Country: None (occurrence: None)
  Receive Date: 20091124
  Receipt Date: 20091120
  Transmission Date: 20100525
  Serious: Yes (Hospitalization, Other)
  Sender: FDA-Public Use
  Company Number: US-MYLANLABS-2009S1018540

PATIENT
  Age: 17 Year
  Sex: Male
  Weight: 55.79 kg

DRUGS (1)
  1. AMNESTEEM [Suspect]
     Indication: ACNE
     Route: 048
     Dates: start: 20090522, end: 20091022

REACTIONS (1)
  - SUICIDE ATTEMPT [None]
